FAERS Safety Report 7200533-9 (Version None)
Quarter: 2010Q4

REPORT INFORMATION
  Report Type: 
  Country: None (occurrence: None)
  Receive Date: 20101228
  Receipt Date: 20101217
  Transmission Date: 20110411
  Serious: Yes (Hospitalization, Other)
  Sender: FDA-Public Use
  Company Number: JP-JNJFOC-20101004751

PATIENT
  Sex: Female
  Weight: 65 kg

DRUGS (18)
  1. REMICADE [Suspect]
     Indication: RHEUMATOID ARTHRITIS
     Route: 042
  2. REMICADE [Suspect]
     Route: 042
  3. REMICADE [Suspect]
     Route: 042
  4. REMICADE [Suspect]
     Route: 042
  5. REMICADE [Suspect]
     Dosage: 3 INFUSIONS ON UNSPECIFIED DATES
     Route: 042
  6. REMICADE [Suspect]
     Route: 042
  7. REMICADE [Suspect]
     Dosage: 2 DOSES ON UNSPECIFIED DATES
     Route: 042
  8. REMICADE [Suspect]
     Route: 042
  9. REMICADE [Suspect]
     Route: 042
  10. METHOTREXATE [Concomitant]
     Indication: RHEUMATOID ARTHRITIS
     Route: 048
  11. LIPITOR [Concomitant]
     Indication: HYPERCHOLESTEROLAEMIA
     Route: 048
  12. NU-LOTAN [Concomitant]
     Indication: HYPERTENSION
     Route: 048
  13. PARIET [Concomitant]
     Route: 048
  14. FOLIAMIN [Concomitant]
     Indication: RHEUMATOID ARTHRITIS
     Route: 048
  15. ADALAT CC [Concomitant]
     Indication: HYPERTENSION
     Route: 048
  16. PREDOHAN [Concomitant]
     Indication: RHEUMATOID ARTHRITIS
     Route: 048
  17. SELBEX [Concomitant]
     Route: 048
  18. CELECOX [Concomitant]
     Indication: RHEUMATOID ARTHRITIS
     Route: 048

REACTIONS (4)
  - KNEE ARTHROPLASTY [None]
  - MACULOPATHY [None]
  - OPTIC NEURITIS [None]
  - RHEUMATOID ARTHRITIS [None]
